FAERS Safety Report 6789931-5 (Version None)
Quarter: 2010Q2

REPORT INFORMATION
  Report Type: 
  Country: None (occurrence: None)
  Receive Date: 20100624
  Receipt Date: 20100614
  Transmission Date: 20101027
  Serious: Yes (Hospitalization)
  Sender: FDA-Public Use
  Company Number: DE-JNJFOC-20100605223

PATIENT
  Age: 31 Year
  Sex: Male

DRUGS (7)
  1. REMICADE [Suspect]
     Indication: DRUG USE FOR UNKNOWN INDICATION
     Route: 042
  2. HUMIRA [Suspect]
     Indication: DRUG USE FOR UNKNOWN INDICATION
     Route: 058
  3. METHOTREXATE [Interacting]
     Indication: DRUG USE FOR UNKNOWN INDICATION
  4. LEFLUNOMIDE [Interacting]
     Indication: DRUG USE FOR UNKNOWN INDICATION
     Route: 048
  5. CELECOXIB [Concomitant]
     Route: 048
  6. TILIDINE [Concomitant]
  7. PREDNISONE [Concomitant]
     Route: 048

REACTIONS (4)
  - DRUG INTERACTION [None]
  - LUNG ABSCESS [None]
  - PNEUMONIA KLEBSIELLA [None]
  - PNEUMONIA LEGIONELLA [None]
